FAERS Safety Report 24467283 (Version 1)
Quarter: 2024Q4

REPORT INFORMATION
  Report Type: Report from Study
  Country: US (occurrence: US)
  Receive Date: 20241018
  Receipt Date: 20241018
  Transmission Date: 20250115
  Serious: No
  Sender: ROCHE
  Company Number: US-ROCHE-3569563

PATIENT
  Sex: Female

DRUGS (2)
  1. XOLAIR [Suspect]
     Active Substance: OMALIZUMAB
     Indication: Product used for unknown indication
     Route: 065
  2. MONTELUKAST [Suspect]
     Active Substance: MONTELUKAST
     Indication: Product used for unknown indication
     Route: 065

REACTIONS (7)
  - Chronic fatigue syndrome [Unknown]
  - Gastrointestinal disorder [Unknown]
  - Urticaria [Unknown]
  - Somnolence [Unknown]
  - Weight increased [Unknown]
  - Endometriosis [Unknown]
  - Mood swings [Unknown]
